FAERS Safety Report 16624222 (Version 1)
Quarter: 2019Q3

REPORT INFORMATION
  Report Type: Spontaneous
  Country: US (occurrence: US)
  Receive Date: 20190724
  Receipt Date: 20190724
  Transmission Date: 20191004
  Serious: No
  Sender: FDA-Public Use
  Company Number: US-GLENMARK PHARMACEUTICALS-2019GMK041524

PATIENT

DRUGS (1)
  1. IMIQUIMOD CREAM USP, 5% [Suspect]
     Active Substance: IMIQUIMOD
     Indication: ANOGENITAL WARTS
     Dosage: UNK, 3 TIMES A WEEK
     Route: 061
     Dates: start: 2019

REACTIONS (6)
  - Application site erythema [Recovered/Resolved]
  - Application site pain [Recovered/Resolved]
  - Application site pruritus [Recovered/Resolved]
  - Skin depigmentation [Recovered/Resolved]
  - Skin weeping [Recovered/Resolved]
  - Application site inflammation [Recovered/Resolved]

NARRATIVE: CASE EVENT DATE: 20190526
